FAERS Safety Report 9160388 (Version 1)
Quarter: 2013Q1

REPORT INFORMATION
  Report Type: Spontaneous
  Country: US (occurrence: US)
  Receive Date: 20130313
  Receipt Date: 20130313
  Transmission Date: 20140127
  Serious: Yes (Death)
  Sender: FDA-Public Use
  Company Number: US-ROCHE-1201157

PATIENT
  Sex: Female

DRUGS (2)
  1. VALIUM [Suspect]
     Indication: PRODUCT USED FOR UNKNOWN INDICATION
     Route: 065
  2. INLYTA [Suspect]
     Indication: RENAL CELL CARCINOMA
     Route: 048
     Dates: start: 201206, end: 201210

REACTIONS (1)
  - Renal cancer metastatic [Fatal]
